FAERS Safety Report 8346403-4 (Version None)
Quarter: 2012Q2

REPORT INFORMATION
  Report Type: 
  Country: None (occurrence: None)
  Receive Date: 20120509
  Receipt Date: 20120427
  Transmission Date: 20120825
  Serious: Yes (Death)
  Sender: FDA-Public Use
  Company Number: JP-BRISTOL-MYERS SQUIBB COMPANY-16549073

PATIENT
  Age: 80 Year
  Sex: Male
  Weight: 47 kg

DRUGS (11)
  1. MIYA-BM [Concomitant]
     Indication: CONSTIPATION
     Route: 048
     Dates: end: 20120323
  2. LOXONIN [Concomitant]
     Indication: CANCER PAIN
     Route: 048
     Dates: start: 20120323
  3. OXINORM [Concomitant]
     Indication: CANCER PAIN
     Route: 048
     Dates: start: 20120323
  4. AMOBAN [Concomitant]
     Indication: INSOMNIA
     Route: 048
     Dates: end: 20120323
  5. MAGMITT [Concomitant]
     Indication: CONSTIPATION
     Route: 048
     Dates: end: 20120323
  6. AMLODIPINE [Concomitant]
     Indication: HYPERTENSION
     Route: 048
     Dates: end: 20120323
  7. LANSOPRAZOLE [Concomitant]
     Indication: GASTRITIS
     Route: 048
     Dates: end: 20120323
  8. BUTYLSCOPOLAMINE [Concomitant]
     Indication: ABDOMINAL PAIN
     Route: 048
     Dates: end: 20120323
  9. ERBITUX [Suspect]
     Indication: RECTAL CANCER
     Route: 042
     Dates: start: 20120210, end: 20120323
  10. OXYCONTIN [Concomitant]
     Indication: CANCER PAIN
     Route: 048
     Dates: start: 20120323
  11. AITOROL [Concomitant]
     Indication: HYPERTENSION
     Route: 048
     Dates: end: 20120323

REACTIONS (2)
  - INTERSTITIAL LUNG DISEASE [None]
  - DECREASED APPETITE [None]
